FAERS Safety Report 4720382-0 (Version None)
Quarter: 2005Q3

REPORT INFORMATION
  Report Type: 
  Country: None (occurrence: None)
  Receive Date: 20050719
  Receipt Date: 20050708
  Transmission Date: 20060218
  Serious: Yes (Other)
  Sender: FDA-Public Use
  Company Number: 2005098366

PATIENT
  Sex: Female

DRUGS (1)
  1. BEXTRA [Suspect]
     Indication: PAIN
     Dosage: 2 TABLETS (1 D), ORAL
     Route: 048
     Dates: start: 20030101

REACTIONS (5)
  - CEREBROVASCULAR ACCIDENT [None]
  - HEMIPLEGIA [None]
  - LEG AMPUTATION [None]
  - PAIN [None]
  - POLYTRAUMATISM [None]
